FAERS Safety Report 13335885 (Version 2)
Quarter: 2017Q1

REPORT INFORMATION
  Report Type: Spontaneous
  Country: MX (occurrence: MX)
  Receive Date: 20170314
  Receipt Date: 20170328
  Transmission Date: 20170428
  Serious: Yes (Death)
  Sender: FDA-Public Use
  Company Number: MX-BAYER-2017-048433

PATIENT

DRUGS (2)
  1. ULTRAVIST [Suspect]
     Active Substance: IOPROMIDE
     Indication: CORONARY ANGIOPLASTY
     Dosage: UNK UNK, ONCE
     Dates: start: 2017
  2. ULTRAVIST [Suspect]
     Active Substance: IOPROMIDE
     Indication: NUCLEAR MAGNETIC RESONANCE IMAGING

REACTIONS (3)
  - Death [Fatal]
  - Poor quality drug administered [Fatal]
  - Product deposit [None]

NARRATIVE: CASE EVENT DATE: 2017
